FAERS Safety Report 11391643 (Version 1)
Quarter: 2015Q3

REPORT INFORMATION
  Report Type: Spontaneous
  Country: US (occurrence: None)
  Receive Date: 20150814
  Receipt Date: 20150814
  Transmission Date: 20151125
  Serious: Yes (Disabling)
  Sender: FDA-Public Use
  Company Number: None

PATIENT
  Age: 72 Year
  Sex: Female
  Weight: 46.72 kg

DRUGS (19)
  1. FOSAMAX [Suspect]
     Active Substance: ALENDRONATE SODIUM
     Indication: OSTEOPENIA
     Dosage: 1 ONCE PER WEEK TAKEN BY MOUTH
     Route: 048
     Dates: start: 20030511, end: 20120511
  2. ACYCLOVIR. [Concomitant]
     Active Substance: ACYCLOVIR
  3. FISH OIL [Concomitant]
     Active Substance: FISH OIL
  4. POTASSIUM [Concomitant]
     Active Substance: POTASSIUM
  5. VITAMIN D [Concomitant]
     Active Substance: CHOLECALCIFEROL
  6. GABAPENTIN. [Concomitant]
     Active Substance: GABAPENTIN
  7. SILICA [Concomitant]
     Active Substance: SILICON DIOXIDE
  8. VITAMIN B12 [Concomitant]
     Active Substance: CYANOCOBALAMIN
  9. MAGNESIUM GLYCINATE [Concomitant]
     Active Substance: MAGNESIUM GLYCINATE
  10. BIOTIN [Concomitant]
     Active Substance: BIOTIN
  11. BORON [Concomitant]
     Active Substance: BORON
  12. DHEA [Concomitant]
     Active Substance: PRASTERONE
  13. FLAXSEED [Concomitant]
     Active Substance: FLAX SEED
  14. MELATONIN [Concomitant]
     Active Substance: MELATONIN
  15. MULTI VITAMIN [Concomitant]
     Active Substance: VITAMINS
  16. PROBIOTIC [Concomitant]
     Active Substance: PROBIOTICS NOS
  17. VITAMIN C [Concomitant]
     Active Substance: ASCORBIC ACID
  18. 5 % LIDODERM PATCH [Concomitant]
  19. METHYLCOBALAMIN [Concomitant]
     Active Substance: METHYLCOBALAMIN

REACTIONS (8)
  - Osteoporosis [None]
  - Incorrect drug administration duration [None]
  - Pathological fracture [None]
  - Fractured sacrum [None]
  - Pubis fracture [None]
  - Stress fracture [None]
  - Pain [None]
  - Sciatica [None]

NARRATIVE: CASE EVENT DATE: 20120511
